FAERS Safety Report 8553655-4 (Version None)
Quarter: 2012Q3

REPORT INFORMATION
  Report Type: 
  Country: None (occurrence: None)
  Receive Date: 20120731
  Receipt Date: 20120710
  Transmission Date: 20120928
  Serious: Yes (Other)
  Sender: FDA-Public Use
  Company Number: BR-009507513-1205BRA00081

PATIENT

DRUGS (5)
  1. JANUMET [Suspect]
     Dosage: UNK
  2. JANUMET [Suspect]
     Indication: DIABETES MELLITUS
     Dosage: UNK
     Route: 048
     Dates: start: 20110901
  3. LOSARTAN POTASSIUM [Suspect]
     Indication: HYPERTENSION
     Dosage: UNK
     Dates: start: 20100101
  4. LEVOTHYROXINE SODIUM [Concomitant]
     Indication: THYROID DISORDER
     Dosage: UNK
     Dates: start: 20070101
  5. AMARYL [Concomitant]
     Indication: DIABETES MELLITUS
     Dosage: UNK
     Dates: start: 20100101

REACTIONS (5)
  - SPLENOMEGALY [None]
  - PLATELET COUNT DECREASED [None]
  - ABDOMINAL PAIN UPPER [None]
  - DIABETES MELLITUS INADEQUATE CONTROL [None]
  - LYMPHOMA [None]
